FAERS Safety Report 21757999 (Version 1)
Quarter: 2022Q4

REPORT INFORMATION
  Report Type: Spontaneous
  Country: US (occurrence: US)
  Receive Date: 20221221
  Receipt Date: 20221221
  Transmission Date: 20230112
  Serious: No
  Sender: FDA-Public Use
  Company Number: US-002147023-NVSC2022US294381

PATIENT
  Sex: Male

DRUGS (1)
  1. DUREZOL [Suspect]
     Active Substance: DIFLUPREDNATE
     Indication: Optic nerve disorder
     Dosage: UNK
     Route: 065

REACTIONS (1)
  - Visual impairment [Unknown]
